FAERS Safety Report 6655501-2 (Version None)
Quarter: 2010Q1

REPORT INFORMATION
  Report Type: 
  Country: None (occurrence: None)
  Receive Date: 20100329
  Receipt Date: 20100319
  Transmission Date: 20100710
  Serious: Yes (Hospitalization)
  Sender: FDA-Public Use
  Company Number: US-JNJFOC-20100306458

PATIENT
  Sex: Female
  Weight: 83.92 kg

DRUGS (9)
  1. LEVAQUIN [Suspect]
     Indication: KIDNEY INFECTION
     Route: 048
     Dates: start: 20100209, end: 20100218
  2. LEXAPRO [Concomitant]
     Indication: DEPRESSION
     Route: 048
  3. ALLEGRA D 24 HOUR [Concomitant]
     Indication: MULTIPLE ALLERGIES
     Route: 048
  4. PRILOSEC [Concomitant]
     Indication: GASTROOESOPHAGEAL REFLUX DISEASE
     Route: 048
  5. SYNTHROID [Concomitant]
     Indication: HYPOTHYROIDISM
     Route: 048
  6. VIVELLE [Concomitant]
     Indication: MENOPAUSAL SYMPTOMS
     Route: 062
  7. PERCOCET [Concomitant]
     Indication: PAIN
     Route: 048
  8. PREDNISONE TAB [Concomitant]
     Indication: SWELLING
     Route: 048
  9. PREDNISONE TAB [Concomitant]
     Indication: PAIN
     Route: 048

REACTIONS (4)
  - INFARCTION [None]
  - JOINT STIFFNESS [None]
  - LIGAMENT INJURY [None]
  - TENDONITIS [None]
